FAERS Safety Report 10302085 (Version 1)
Quarter: 2014Q3

REPORT INFORMATION
  Report Type: Spontaneous
  Country: US (occurrence: US)
  Receive Date: 20140714
  Receipt Date: 20140714
  Transmission Date: 20150326
  Serious: No
  Sender: FDA-Public Use
  Company Number: US-TEVA-494328USA

PATIENT
  Age: 16 Year
  Sex: Female
  Weight: 61.29 kg

DRUGS (3)
  1. NEXT CHOICE [Suspect]
     Active Substance: LEVONORGESTREL
     Indication: POST COITAL CONTRACEPTION
     Route: 048
     Dates: start: 20140706, end: 20140706
  2. TAKE ACTION [Suspect]
     Active Substance: LEVONORGESTREL
     Dosage: 1.5 MILLIGRAM DAILY;
     Route: 048
     Dates: start: 20140708, end: 20140708
  3. TAKE ACTION [Suspect]
     Active Substance: LEVONORGESTREL
     Indication: MENSTRUAL CYCLE MANAGEMENT
     Dosage: 1.5 MILLIGRAM DAILY;
     Route: 048
     Dates: start: 20140708, end: 20140708

REACTIONS (3)
  - Off label use [Unknown]
  - Menstruation irregular [Not Recovered/Not Resolved]
  - Intentional overdose [Unknown]

NARRATIVE: CASE EVENT DATE: 20140708
